FAERS Safety Report 23263511 (Version 1)
Quarter: 2023Q4

REPORT INFORMATION
  Report Type: Spontaneous
  Country: AT (occurrence: AT)
  Receive Date: 20231205
  Receipt Date: 20231205
  Transmission Date: 20240110
  Serious: Yes (Disabling)
  Sender: FDA-Public Use
  Company Number: AT-JNJFOC-20231132255

PATIENT
  Age: 61 Year
  Sex: Male
  Weight: 74 kg

DRUGS (8)
  1. ERLEADA [Suspect]
     Active Substance: APALUTAMIDE
     Indication: Prostate cancer
     Route: 048
  2. FENTANYL CITRATE [Concomitant]
     Active Substance: FENTANYL CITRATE
     Route: 058
  3. ESOMEPRAZOLE [Concomitant]
     Active Substance: ESOMEPRAZOLE
     Indication: Prophylaxis
  4. HALCION [Concomitant]
     Active Substance: TRIAZOLAM
     Indication: Hypersomnia
  5. CALCIUM CARBONATE\CHOLECALCIFEROL [Concomitant]
     Active Substance: CALCIUM CARBONATE\CHOLECALCIFEROL
  6. DIPYRONE [Concomitant]
     Active Substance: DIPYRONE
     Indication: Pain
  7. DENOSUMAB [Concomitant]
     Active Substance: DENOSUMAB
  8. FENTANYL [Concomitant]
     Active Substance: FENTANYL\FENTANYL CITRATE

REACTIONS (4)
  - Dermatitis herpetiformis [Unknown]
  - Herpes virus infection [Unknown]
  - Rash pruritic [Recovered/Resolved]
  - Oral mucosal blistering [Unknown]

NARRATIVE: CASE EVENT DATE: 20230425
